FAERS Safety Report 16445245 (Version 1)
Quarter: 2019Q2

REPORT INFORMATION
  Report Type: Report from Study
  Country: DE (occurrence: DE)
  Receive Date: 20190618
  Receipt Date: 20190618
  Transmission Date: 20190711
  Serious: Yes (Hospitalization)
  Sender: FDA-Public Use
  Company Number: DE-MYLANLABS-2019M1055627

PATIENT
  Sex: Male

DRUGS (12)
  1. HYDROXYCHLOROQUINE [Suspect]
     Active Substance: HYDROXYCHLOROQUINE
     Indication: PRODUCT USED FOR UNKNOWN INDICATION
     Dosage: 200MG, UNK
     Route: 065
     Dates: start: 20170228
  2. METHOTREXATE. [Suspect]
     Active Substance: METHOTREXATE
     Dosage: 10MG, UNK
     Route: 065
     Dates: start: 20180130
  3. SULFASALAZINE. [Suspect]
     Active Substance: SULFASALAZINE
     Dosage: 500MG, UNK
     Route: 065
     Dates: start: 20170517
  4. SULFASALAZINE. [Suspect]
     Active Substance: SULFASALAZINE
     Dosage: 500 MG, UNK
     Route: 065
     Dates: start: 20170814
  5. HYDROXYCHLOROQUINE [Suspect]
     Active Substance: HYDROXYCHLOROQUINE
     Dosage: 200 MG, UNK
     Route: 065
     Dates: start: 20180130
  6. METHOTREXATE. [Suspect]
     Active Substance: METHOTREXATE
     Indication: PRODUCT USED FOR UNKNOWN INDICATION
     Dosage: 20MG, UNK
     Route: 065
     Dates: start: 20170220
  7. SULFASALAZINE. [Suspect]
     Active Substance: SULFASALAZINE
     Indication: PRODUCT USED FOR UNKNOWN INDICATION
     Dosage: 500MG, UNK
     Route: 065
     Dates: start: 20170228
  8. METHOTREXATE. [Suspect]
     Active Substance: METHOTREXATE
     Dosage: 20 MG, UNK
     Route: 065
     Dates: start: 20170814
  9. SULFASALAZINE. [Suspect]
     Active Substance: SULFASALAZINE
     Dosage: 500MG, UNK
     Route: 065
     Dates: start: 20180130
  10. HYDROXYCHLOROQUINE [Suspect]
     Active Substance: HYDROXYCHLOROQUINE
     Dosage: 200MG, UNK
     Route: 065
     Dates: start: 20170814
  11. METHOTREXATE. [Suspect]
     Active Substance: METHOTREXATE
     Dosage: 20MG, UNK
     Route: 065
     Dates: start: 20170517
  12. HYDROXYCHLOROQUINE [Suspect]
     Active Substance: HYDROXYCHLOROQUINE
     Dosage: 200MG, UNK
     Route: 065
     Dates: start: 20170517

REACTIONS (5)
  - Hypertensive crisis [Recovered/Resolved]
  - Tooth abscess [Unknown]
  - Rheumatoid arthritis [Recovered/Resolved]
  - Urine analysis abnormal [Unknown]
  - Peripheral swelling [Unknown]

NARRATIVE: CASE EVENT DATE: 20170315
